FAERS Safety Report 4341935-8 (Version None)
Quarter: 2004Q2

REPORT INFORMATION
  Report Type: 
  Country: None (occurrence: None)
  Receive Date: 20040413
  Receipt Date: 20040329
  Transmission Date: 20050107
  Serious: Yes (Other)
  Sender: FDA-Public Use
  Company Number: 2004-0006858

PATIENT
  Age: 24 Year
  Sex: Female

DRUGS (5)
  1. VIREAD [Suspect]
     Indication: HIV INFECTION
     Dosage: 300 MG, 1 IN 1 D, ORAL
     Route: 048
     Dates: start: 20040303, end: 20040313
  2. COMBIVIR (ZIDOVUDINE W/LAMIVUDINE)(1 DOSAGE FORMS, TABLET) [Concomitant]
  3. NELFINAVIR (NELFINAVIR ) (TABLET) [Concomitant]
  4. LAMIVUDINE (LAMIVUDINE) (TABLET) [Concomitant]
  5. NEVIRAPINE (NEVIRAPINE) (TABLET) [Concomitant]

REACTIONS (8)
  - ABORTION SPONTANEOUS [None]
  - ANTEPARTUM HAEMORRHAGE [None]
  - CHORIOAMNIONITIS [None]
  - COMPLICATIONS OF MATERNAL EXPOSURE TO THERAPEUTIC DRUGS [None]
  - INFARCTION [None]
  - MATERNAL DRUGS AFFECTING FOETUS [None]
  - METRORRHAGIA [None]
  - THROMBOSIS [None]
